FAERS Safety Report 4336439-2 (Version None)
Quarter: 2004Q2

REPORT INFORMATION
  Report Type: 
  Country: None (occurrence: None)
  Receive Date: 20040407
  Receipt Date: 20040326
  Transmission Date: 20050107
  Serious: Yes (Disabling)
  Sender: FDA-Public Use
  Company Number: HQWYE191329MAR04

PATIENT
  Age: 61 Year
  Sex: Female
  Weight: 61.29 kg

DRUGS (4)
  1. LODINE XL [Suspect]
     Indication: OSTEOARTHRITIS
     Dosage: 500 MG 2X PER 1 DAY, ORAL
     Route: 048
     Dates: start: 19960101
  2. SYNTHROID [Concomitant]
  3. MIRALAX [Concomitant]
  4. FOSAMAX [Concomitant]

REACTIONS (4)
  - BEDRIDDEN [None]
  - IMPAIRED WORK ABILITY [None]
  - OSTEOARTHRITIS [None]
  - PAIN [None]
